FAERS Safety Report 21060035 (Version 1)
Quarter: 2022Q3

REPORT INFORMATION
  Report Type: Spontaneous
  Country: US (occurrence: US)
  Receive Date: 20220708
  Receipt Date: 20220708
  Transmission Date: 20221026
  Serious: No
  Sender: FDA-Public Use
  Company Number: US-SANOFI-01166504

PATIENT
  Age: 5 Year
  Sex: Male
  Weight: 21.4 kg

DRUGS (1)
  1. DUPIXENT [Suspect]
     Active Substance: DUPILUMAB
     Indication: Dermatitis atopic
     Dosage: 600 MG, 1X
     Dates: start: 20220607, end: 20220607

REACTIONS (2)
  - Fear of injection [Unknown]
  - Product use issue [Unknown]

NARRATIVE: CASE EVENT DATE: 20220607
